FAERS Safety Report 8425972-X (Version None)
Quarter: 2012Q2

REPORT INFORMATION
  Report Type: 
  Country: None (occurrence: None)
  Receive Date: 20120604
  Receipt Date: 20120517
  Transmission Date: 20120825
  Serious: Yes (Other)
  Sender: FDA-Public Use
  Company Number: DSA_57459_2012

PATIENT
  Age: 57 Year
  Sex: Male

DRUGS (4)
  1. REMICADE [Suspect]
     Indication: RHEUMATOID ARTHRITIS
     Dosage: (DF)
     Dates: start: 20100101
  2. ENALAPRIL MALEATE [Suspect]
     Indication: HYPERTENSION
     Dosage: 10 MG  (10 MG QD)
     Dates: start: 20050101
  3. HUMIRA [Concomitant]
  4. METHOTREXATE [Concomitant]

REACTIONS (2)
  - BLOOD PRESSURE DECREASED [None]
  - CHILLS [None]
